FAERS Safety Report 9083327 (Version 1)
Quarter: 2013Q1

REPORT INFORMATION
  Report Type: Report from Study
  Country: US (occurrence: US)
  Receive Date: 20130131
  Receipt Date: 20130131
  Transmission Date: 20140127
  Serious: No
  Sender: FDA-Public Use
  Company Number: US-ABBOTT-12P-163-0994156-00

PATIENT
  Age: 64 Year
  Sex: Male

DRUGS (7)
  1. HUMIRA [Suspect]
     Indication: CROHN^S DISEASE
     Dates: end: 20120928
  2. PENTASA [Concomitant]
     Indication: CROHN^S DISEASE
  3. ACID REFLUX MEDICATION [Concomitant]
     Indication: PRODUCT USED FOR UNKNOWN INDICATION
     Dosage: DAILY
  4. METOPROLOL [Concomitant]
     Indication: ATRIAL FIBRILLATION
  5. PRADAXA [Concomitant]
     Indication: ANTICOAGULANT THERAPY
  6. B12 [Concomitant]
     Indication: VITAMIN B12 DECREASED
     Dosage: MONTHLY
  7. MULTIVITAMIN [Concomitant]
     Indication: PERNICIOUS ANAEMIA
     Dosage: DAILY

REACTIONS (4)
  - Wound secretion [Not Recovered/Not Resolved]
  - Insomnia [Not Recovered/Not Resolved]
  - Skin infection [Not Recovered/Not Resolved]
  - Hypersensitivity [Not Recovered/Not Resolved]
